FAERS Safety Report 9288595 (Version 1)
Quarter: 2013Q2

REPORT INFORMATION
  Report Type: Spontaneous
  Country: US (occurrence: US)
  Receive Date: 20130514
  Receipt Date: 20130514
  Transmission Date: 20140414
  Serious: Yes (Hospitalization, Other)
  Sender: FDA-Public Use
  Company Number: US-TEVA-404319USA

PATIENT
  Age: 2 Year
  Sex: Male

DRUGS (4)
  1. CLONAZEPAM [Suspect]
  2. CYMBALTA [Suspect]
  3. ALLERGY MEDICATION [Suspect]
  4. LORATADINE [Suspect]

REACTIONS (13)
  - Accidental exposure to product by child [Not Recovered/Not Resolved]
  - Laceration [Unknown]
  - Abasia [Unknown]
  - Aggression [Not Recovered/Not Resolved]
  - Head banging [Not Recovered/Not Resolved]
  - Somnolence [Recovered/Resolved]
  - Vomiting [Unknown]
  - Balance disorder [Unknown]
  - Fall [Unknown]
  - Irritability [Not Recovered/Not Resolved]
  - Anger [Not Recovered/Not Resolved]
  - Anxiety [Not Recovered/Not Resolved]
  - Drooling [Not Recovered/Not Resolved]
